FAERS Safety Report 25245869 (Version 2)
Quarter: 2025Q3

REPORT INFORMATION
  Report Type: Spontaneous
  Country: EU (occurrence: EU)
  Receive Date: 20250428
  Receipt Date: 20250718
  Transmission Date: 20251020
  Serious: Yes (Death, Other)
  Sender: MYLAN
  Company Number: EU-MYLANLABS-2025M1036391

PATIENT
  Age: 72 Year
  Sex: Male
  Weight: 91 kg

DRUGS (41)
  1. AMIODARONE [Suspect]
     Active Substance: AMIODARONE
     Indication: Product used for unknown indication
     Dosage: 1 DOSAGE FORM, QD (5 DAYS/7)
     Dates: start: 20150608
  2. PRADAXA [Concomitant]
     Active Substance: DABIGATRAN ETEXILATE MESYLATE
     Dosage: 2 DOSAGE FORM, QD
     Dates: start: 20140505
  3. PRADAXA [Concomitant]
     Active Substance: DABIGATRAN ETEXILATE MESYLATE
     Dosage: 2 DOSAGE FORM, QD
     Dates: start: 20140727
  4. ATENOLOL [Concomitant]
     Active Substance: ATENOLOL
     Dosage: 1 DOSAGE FORM, QD
     Dates: start: 20140505
  5. ATENOLOL [Concomitant]
     Active Substance: ATENOLOL
     Dosage: 1 DOSAGE FORM, QD
     Dates: start: 20140727
  6. ENALAPRIL [Concomitant]
     Active Substance: ENALAPRIL
     Dosage: 1 DOSAGE FORM, QD
     Dates: start: 20140505
  7. ENALAPRIL [Concomitant]
     Active Substance: ENALAPRIL
     Dosage: 1 DOSAGE FORM, QD
     Dates: start: 20140727
  8. FLECAINIDE [Concomitant]
     Active Substance: FLECAINIDE
     Dosage: 1 DOSAGE FORM, QD
     Dates: start: 20140505
  9. FLECAINIDE [Concomitant]
     Active Substance: FLECAINIDE
     Dosage: 1 DOSAGE FORM, QD
     Dates: start: 20140727
  10. ALLOPURINOL [Concomitant]
     Active Substance: ALLOPURINOL
     Dosage: 1 DOSAGE FORM, QD
     Dates: start: 20140505
  11. ALLOPURINOL [Concomitant]
     Active Substance: ALLOPURINOL
     Dosage: 1 DOSAGE FORM, QD
     Dates: start: 20140727
  12. ALLOPURINOL [Concomitant]
     Active Substance: ALLOPURINOL
  13. ALLOPURINOL [Concomitant]
     Active Substance: ALLOPURINOL
  14. HERBALS\SAW PALMETTO [Concomitant]
     Active Substance: HERBALS\SAW PALMETTO
     Dosage: UNK, BID (1-0-1)
     Dates: start: 20140505
  15. Dexeryl [Concomitant]
  16. TAMSULOSIN HYDROCHLORIDE [Concomitant]
     Active Substance: TAMSULOSIN HYDROCHLORIDE
     Dosage: 1 DOSAGE FORM, QD
     Dates: start: 20140727
  17. TAMSULOSIN HYDROCHLORIDE [Concomitant]
     Active Substance: TAMSULOSIN HYDROCHLORIDE
  18. Clamoxyl [Concomitant]
     Dosage: UNK, BID (2-0-2)
     Dates: start: 20140727
  19. ALLOPURINOL [Concomitant]
     Active Substance: ALLOPURINOL
  20. PERFALGAN [Concomitant]
     Active Substance: ACETAMINOPHEN
  21. FUROSEMIDE [Concomitant]
     Active Substance: FUROSEMIDE
  22. TRAMADOL HYDROCHLORIDE [Concomitant]
     Active Substance: TRAMADOL HYDROCHLORIDE
  23. ASPIRIN [Concomitant]
     Active Substance: ASPIRIN
  24. OMEPRAZOLE [Concomitant]
     Active Substance: OMEPRAZOLE
  25. CORDARONE [Concomitant]
     Active Substance: AMIODARONE HYDROCHLORIDE
     Dosage: 1 DOSAGE FORM, QD
     Dates: start: 20141010
  26. CORDARONE [Concomitant]
     Active Substance: AMIODARONE HYDROCHLORIDE
     Dosage: 1 DOSAGE FORM, QD  (ONE AT LUNCHTIME FIVE DAYS A WEEK, UNDER THE SUPERVISION OF THYROID FUNCTION TESTS)
  27. CORDARONE [Concomitant]
     Active Substance: AMIODARONE HYDROCHLORIDE
  28. ESOMEPRAZOLE [Concomitant]
     Active Substance: ESOMEPRAZOLE
  29. ESOMEPRAZOLE [Concomitant]
     Active Substance: ESOMEPRAZOLE
  30. ESOMEPRAZOLE [Concomitant]
     Active Substance: ESOMEPRAZOLE
     Dosage: 1 DOSAGE FORM, PM (1 IN THE EVENING)
  31. ESOMEPRAZOLE [Concomitant]
     Active Substance: ESOMEPRAZOLE
  32. KARDEGIC [Concomitant]
     Active Substance: ASPIRIN DL-LYSINE
  33. KARDEGIC [Concomitant]
     Active Substance: ASPIRIN DL-LYSINE
  34. KARDEGIC [Concomitant]
     Active Substance: ASPIRIN DL-LYSINE
  35. ALLOPURINOL [Concomitant]
     Active Substance: ALLOPURINOL
  36. ALLOPURINOL [Concomitant]
     Active Substance: ALLOPURINOL
     Dosage: 1 DOSAGE FORM, QD (1 AT LUNCHTIME )
  37. Previscan [Concomitant]
  38. Previscan [Concomitant]
  39. BROMAZEPAM [Concomitant]
     Active Substance: BROMAZEPAM
  40. CEFOTAXIME [Concomitant]
     Active Substance: CEFOTAXIME SODIUM
     Dosage: 3 GRAM, QD
     Dates: start: 20150731
  41. OFLOXACIN [Concomitant]
     Active Substance: OFLOXACIN
     Indication: Inflammation
     Dosage: 200 MILLIGRAM, BID
     Dates: start: 20150831

REACTIONS (1)
  - Pulmonary fibrosis [Fatal]

NARRATIVE: CASE EVENT DATE: 20150715
